FAERS Safety Report 5750083-1 (Version None)
Quarter: 2008Q2

REPORT INFORMATION
  Report Type: 
  Country: None (occurrence: None)
  Receive Date: 20080523
  Receipt Date: 20080523
  Transmission Date: 20081010
  Serious: Yes (Life-Threatening, Hospitalization, Other)
  Sender: FDA-Public Use
  Company Number: None

PATIENT
  Age: 55 Year
  Sex: Female
  Weight: 69.8539 kg

DRUGS (2)
  1. CLOBETASOL PROPIONATE [Suspect]
     Indication: SKIN LESION
     Dosage: ^APPLY^ 2X A DAY 60 DAYS TOP
     Route: 061
     Dates: start: 20060927, end: 20061014
  2. CLOBETASOL PROPIONATE [Suspect]
     Indication: VAGINAL LESION
     Dosage: ^APPLY^ 2X A DAY 60 DAYS TOP
     Route: 061
     Dates: start: 20060927, end: 20061014

REACTIONS (6)
  - DRUG DISPENSING ERROR [None]
  - HYPERGLYCAEMIA [None]
  - ILL-DEFINED DISORDER [None]
  - INCORRECT DOSE ADMINISTERED [None]
  - MEDICATION ERROR [None]
  - WEIGHT DECREASED [None]
